FAERS Safety Report 24648979 (Version 1)
Quarter: 2024Q4

REPORT INFORMATION
  Report Type: Spontaneous
  Country: US (occurrence: US)
  Receive Date: 20241121
  Receipt Date: 20241121
  Transmission Date: 20250114
  Serious: No
  Sender: MYCOVIA PHARMACEUTICALS, INC.
  Company Number: MYC24-00112

PATIENT

DRUGS (4)
  1. VIVJOA [Suspect]
     Active Substance: OTESECONAZOLE
     Indication: Vulvovaginal candidiasis
     Dosage: 600 MILLIGRAM, SINGLE (4 CAPSULES AS A SINGLE DOSE)
     Route: 048
     Dates: start: 20240624, end: 20240624
  2. VIVJOA [Suspect]
     Active Substance: OTESECONAZOLE
     Dosage: 450 MILLIGRAM, SINGLE (3 CAPSULES AS SINGLE DOSE)
     Route: 048
     Dates: start: 20240625, end: 20240625
  3. VIVJOA [Suspect]
     Active Substance: OTESECONAZOLE
     Dosage: UNK MILLIGRAM, SINGLE
     Route: 048
     Dates: start: 20240701, end: 20240701
  4. VIVJOA [Suspect]
     Active Substance: OTESECONAZOLE
     Dosage: 150 MILLIGRAM, WEEKLY
     Route: 048
     Dates: start: 20240707

REACTIONS (2)
  - Fungal infection [Not Recovered/Not Resolved]
  - Intentional product misuse [Unknown]

NARRATIVE: CASE EVENT DATE: 20240627
